FAERS Safety Report 8421740-3 (Version None)
Quarter: 2012Q2

REPORT INFORMATION
  Report Type: 
  Country: None (occurrence: None)
  Receive Date: 20120608
  Receipt Date: 20120529
  Transmission Date: 20120825
  Serious: Yes (Death, Hospitalization)
  Sender: FDA-Public Use
  Company Number: JP-BRISTOL-MYERS SQUIBB COMPANY-16641722

PATIENT
  Age: 58 Year
  Sex: Female

DRUGS (2)
  1. PARAPLATIN AQ [Suspect]
     Indication: CERVIX CARCINOMA
     Route: 041
     Dates: start: 20120515, end: 20120515
  2. TAXOL [Suspect]
     Indication: CERVIX CARCINOMA
     Route: 041
     Dates: start: 20120515, end: 20120515

REACTIONS (1)
  - HEPATIC FAILURE [None]
